APPROVED DRUG PRODUCT: FELBAMATE
Active Ingredient: FELBAMATE
Strength: 600MG
Dosage Form/Route: TABLET;ORAL
Application: A208970 | Product #002 | TE Code: AB
Applicant: ZYDUS LIFESCIENCES LTD
Approved: May 30, 2017 | RLD: No | RS: No | Type: RX